FAERS Safety Report 16017629 (Version 1)
Quarter: 2019Q1

REPORT INFORMATION
  Report Type: Spontaneous
  Country: US (occurrence: US)
  Receive Date: 20190228
  Receipt Date: 20190228
  Transmission Date: 20190418
  Serious: No
  Sender: FDA-Public Use
  Company Number: US-ELI_LILLY_AND_COMPANY-US201902013794

PATIENT
  Age: 57 Year
  Sex: Female

DRUGS (2)
  1. BOTOX [Concomitant]
     Active Substance: ONABOTULINUMTOXINA
     Indication: PRODUCT USED FOR UNKNOWN INDICATION
     Dosage: 38 DF, UNKNOWN
     Route: 065
     Dates: start: 2015
  2. EMGALITY [Suspect]
     Active Substance: GALCANEZUMAB-GNLM
     Indication: MIGRAINE
     Dosage: 2 DF, UNKNOWN
     Route: 065
     Dates: start: 20190212

REACTIONS (8)
  - Rash vesicular [Unknown]
  - Rash erythematous [Unknown]
  - Discomfort [Unknown]
  - Pruritus [Unknown]
  - Feeling hot [Unknown]
  - Hypersensitivity [Unknown]
  - Injection site pain [Unknown]
  - Skin exfoliation [Unknown]

NARRATIVE: CASE EVENT DATE: 20190222
